FAERS Safety Report 22161708 (Version 1)
Quarter: 2023Q1

REPORT INFORMATION
  Report Type: Spontaneous
  Country: US (occurrence: None)
  Receive Date: 20230330
  Receipt Date: 20230330
  Transmission Date: 20230418
  Serious: No
  Sender: FDA-Public Use
  Company Number: None

PATIENT
  Sex: Female

DRUGS (5)
  1. VERZENIO [Suspect]
     Active Substance: ABEMACICLIB
     Indication: Breast cancer female
     Dosage: FREQUENCY : TWICE A DAY;?
     Route: 048
     Dates: start: 202303
  2. VERZENIO [Suspect]
     Active Substance: ABEMACICLIB
     Indication: Metastases to bone
  3. VERZENIO [Suspect]
     Active Substance: ABEMACICLIB
     Indication: Metastases to bone marrow
  4. VERZENIO [Suspect]
     Active Substance: ABEMACICLIB
     Indication: Metastases to liver
  5. VERZENIO [Suspect]
     Active Substance: ABEMACICLIB
     Indication: Metastases to biliary tract

REACTIONS (1)
  - Drug ineffective [None]
